FAERS Safety Report 4441930-4 (Version None)
Quarter: 2004Q3

REPORT INFORMATION
  Report Type: 
  Country: None (occurrence: None)
  Receive Date: 20040901
  Receipt Date: 20040818
  Transmission Date: 20050211
  Serious: Yes (Hospitalization)
  Sender: FDA-Public Use
  Company Number: STA-AE-04-MTX-370

PATIENT
  Age: 37 Year
  Sex: Female

DRUGS (4)
  1. NOVATREX (METHOTREXATE, TABLET, 0) [Suspect]
     Indication: SYSTEMIC LUPUS ERYTHEMATOSUS
     Dosage: 2.5 MG 3X PER 1 DAY, ORAL
     Route: 048
     Dates: start: 20040630, end: 20040713
  2. MEPRONIZINE (ACEPROMETAZINE/MEPROBAMATE) [Concomitant]
  3. PAROXETINE HCL [Concomitant]
  4. RISPERDAL [Concomitant]

REACTIONS (7)
  - ACCIDENTAL OVERDOSE [None]
  - EPISTAXIS [None]
  - GINGIVAL BLEEDING [None]
  - HAEMATEMESIS [None]
  - MEDICATION ERROR [None]
  - MELAENA [None]
  - PANCYTOPENIA [None]
